FAERS Safety Report 24840292 (Version 1)
Quarter: 2025Q1

REPORT INFORMATION
  Report Type: Spontaneous
  Country: IT (occurrence: IT)
  Receive Date: 20250114
  Receipt Date: 20250114
  Transmission Date: 20250408
  Serious: Yes (Other)
  Sender: ALEXION PHARMACEUTICALS
  Company Number: None

PATIENT
  Age: 31 Day
  Weight: 3 kg

DRUGS (4)
  1. BEYFORTUS [Suspect]
     Active Substance: NIRSEVIMAB-ALIP
     Indication: Antiviral prophylaxis
  2. BEYFORTUS [Suspect]
     Active Substance: NIRSEVIMAB-ALIP
     Route: 030
  3. BEYFORTUS [Suspect]
     Active Substance: NIRSEVIMAB-ALIP
  4. BEYFORTUS [Suspect]
     Active Substance: NIRSEVIMAB-ALIP
     Route: 030

REACTIONS (1)
  - Haematochezia [Not Recovered/Not Resolved]
